FAERS Safety Report 19925360 (Version 1)
Quarter: 2021Q4

REPORT INFORMATION
  Report Type: Spontaneous
  Country: US (occurrence: US)
  Receive Date: 20211006
  Receipt Date: 20211006
  Transmission Date: 20220303
  Serious: Yes (Hospitalization, Congenital Anomaly, Other)
  Sender: FDA-Public Use
  Company Number: US-GILEAD-2021-0550391

PATIENT
  Sex: Male
  Weight: 1 kg

DRUGS (1)
  1. AMPHOTERICIN B [Suspect]
     Active Substance: AMPHOTERICIN B
     Indication: Disseminated coccidioidomycosis
     Dosage: UNK UNK, UNKNOWN FREQ.
     Route: 064

REACTIONS (4)
  - Congenital infection [Recovered/Resolved]
  - Coccidioidomycosis [Recovered/Resolved]
  - Caesarean section [Recovered/Resolved]
  - Premature baby [Recovered/Resolved]
